FAERS Safety Report 21123700 (Version 1)
Quarter: 2022Q3

REPORT INFORMATION
  Report Type: Spontaneous
  Country: US (occurrence: US)
  Receive Date: 20220725
  Receipt Date: 20220725
  Transmission Date: 20221027
  Serious: No
  Sender: FDA-Public Use
  Company Number: US-SUN PHARMACEUTICAL INDUSTRIES LTD-2022R1-339400

PATIENT
  Age: 84 Year
  Sex: Female

DRUGS (1)
  1. VALSARTAN [Suspect]
     Active Substance: VALSARTAN
     Indication: Product used for unknown indication
     Dosage: UNK UNK, OD
     Route: 065

REACTIONS (3)
  - Wrong technique in product usage process [Unknown]
  - Oropharyngeal pain [Unknown]
  - Swelling [Unknown]

NARRATIVE: CASE EVENT DATE: 20220408
